FAERS Safety Report 5071443-0 (Version None)
Quarter: 2006Q3

REPORT INFORMATION
  Report Type: 
  Country: None (occurrence: None)
  Receive Date: 20060804
  Receipt Date: 20050516
  Transmission Date: 20061208
  Serious: Yes (Other)
  Sender: FDA-Public Use
  Company Number: US-GLAXOSMITHKLINE-A0559052A

PATIENT
  Age: 24 Year
  Sex: Female

DRUGS (4)
  1. PAXIL [Suspect]
     Indication: ANXIETY DISORDER
     Route: 048
  2. MARIJUANA [Concomitant]
  3. ORTHO TRI-CYCLEN [Concomitant]
  4. ACETAMINOPHEN [Concomitant]

REACTIONS (9)
  - CONFUSIONAL STATE [None]
  - CYANOSIS [None]
  - DRUG WITHDRAWAL SYNDROME [None]
  - GRAND MAL CONVULSION [None]
  - HEADACHE [None]
  - PHOTOPHOBIA [None]
  - SENSORY DISTURBANCE [None]
  - SOMNOLENCE [None]
  - VISUAL DISTURBANCE [None]
